FAERS Safety Report 5412370-6 (Version None)
Quarter: 2007Q3

REPORT INFORMATION
  Report Type: 
  Country: None (occurrence: None)
  Receive Date: 20070713
  Receipt Date: 20070419
  Transmission Date: 20080115
  Serious: No
  Sender: FDA-Public Use
  Company Number: 2007SP001442

PATIENT
  Age: 46 Year
  Sex: Female
  Weight: 72.5755 kg

DRUGS (6)
  1. LUNESTA [Suspect]
     Indication: INSOMNIA
     Dosage: 2 MG;HS;ORAL    3 MG;HS;ORAL
     Route: 048
     Dates: start: 20060101, end: 20060101
  2. LUNESTA [Suspect]
     Indication: INSOMNIA
     Dosage: 2 MG;HS;ORAL    3 MG;HS;ORAL
     Route: 048
     Dates: start: 20060101
  3. RELPAX [Concomitant]
  4. SYNTHROID [Concomitant]
  5. VITAMIN CAP [Concomitant]
  6. OS-CAL [Concomitant]

REACTIONS (5)
  - DIZZINESS [None]
  - HEADACHE [None]
  - MIDDLE INSOMNIA [None]
  - SINUSITIS [None]
  - VITREOUS FLOATERS [None]
